FAERS Safety Report 8061503-4 (Version None)
Quarter: 2012Q1

REPORT INFORMATION
  Report Type: 
  Country: None (occurrence: None)
  Receive Date: 20120120
  Receipt Date: 20120110
  Transmission Date: 20120608
  Serious: No
  Sender: FDA-Public Use
  Company Number: US-ALLERGAN-1116325US

PATIENT
  Sex: Male

DRUGS (2)
  1. RESTASIS [Suspect]
     Indication: PHOTOPHOBIA
     Dosage: UNK
     Route: 047
     Dates: start: 20111130
  2. RESTASIS [Suspect]
     Indication: DRY EYE
     Dosage: UNK
     Route: 047
     Dates: start: 20050101

REACTIONS (3)
  - SKIN ULCER [None]
  - EYELID SENSORY DISORDER [None]
  - SCAB [None]
